FAERS Safety Report 8486167-7 (Version None)
Quarter: 2012Q3

REPORT INFORMATION
  Report Type: 
  Country: None (occurrence: None)
  Receive Date: 20120703
  Receipt Date: 20120626
  Transmission Date: 20120928
  Serious: Yes (Hospitalization)
  Sender: FDA-Public Use
  Company Number: GB-PFIZER INC-2012153269

PATIENT
  Age: 80 Year
  Sex: Male
  Weight: 70 kg

DRUGS (8)
  1. BISOPROLOL FUMARATE [Concomitant]
  2. OMEPRAZOLE [Concomitant]
  3. PERINDOPRIL ERBUMINE [Concomitant]
  4. ZYVOX [Suspect]
     Indication: WOUND INFECTION
     Dosage: 600 MG, 2X/DAY
     Route: 048
     Dates: start: 20120523, end: 20120614
  5. ATORVASTATIN [Concomitant]
  6. ACETYLSALICYLIC ACID [Concomitant]
  7. NITRAZEPAM [Concomitant]
  8. TAMSULOSIN HCL [Concomitant]

REACTIONS (3)
  - HAEMOGLOBIN DECREASED [None]
  - PANCYTOPENIA [None]
  - MALAISE [None]
